FAERS Safety Report 5324857-5 (Version None)
Quarter: 2007Q2

REPORT INFORMATION
  Report Type: 
  Country: None (occurrence: None)
  Receive Date: 20070515
  Receipt Date: 20070510
  Transmission Date: 20071010
  Serious: Yes (Other)
  Sender: FDA-Public Use
  Company Number: FR-ELI_LILLY_AND_COMPANY-FR200702001456

PATIENT
  Age: 53 Year
  Sex: Female
  Weight: 79 kg

DRUGS (5)
  1. ALIMTA [Suspect]
     Indication: NON-SMALL CELL LUNG CANCER
     Dosage: 930 MG, OTHER
     Route: 042
     Dates: start: 20061120
  2. SOLUPRED [Concomitant]
     Indication: SUPPLEMENTATION THERAPY
     Dosage: 20 MG, DAILY (1/D)
     Route: 048
     Dates: start: 20061120, end: 20070325
  3. FOLIC ACID [Concomitant]
     Indication: VITAMIN SUPPLEMENTATION
     Route: 048
  4. VITAMIN B-12 [Concomitant]
     Indication: VITAMIN SUPPLEMENTATION
     Route: 030
  5. ZOFRAN [Concomitant]
     Indication: PREMEDICATION
     Dosage: 8 MG, 2/D
     Route: 048
     Dates: start: 20061120, end: 20070325

REACTIONS (4)
  - INTERSTITIAL LUNG DISEASE [None]
  - SINUSITIS [None]
  - SKIN HYPERPIGMENTATION [None]
  - URTICARIA GENERALISED [None]
